FAERS Safety Report 5160083-0 (Version None)
Quarter: 2006Q4

REPORT INFORMATION
  Report Type: 
  Country: None (occurrence: None)
  Receive Date: 20061129
  Receipt Date: 20060919
  Transmission Date: 20070319
  Serious: No
  Sender: FDA-Public Use
  Company Number: US-GLAXOSMITHKLINE-A0620678A

PATIENT
  Age: 43 Year
  Sex: Male

DRUGS (6)
  1. BUPROPION HYDROCHLORIDE [Suspect]
     Indication: DEPRESSION
     Dosage: 150MG TWICE PER DAY
     Route: 048
  2. IBUPROFEN [Concomitant]
  3. CLARITIN [Concomitant]
  4. VICODIN [Concomitant]
  5. BENADRYL [Concomitant]
  6. ATIVAN [Concomitant]

REACTIONS (3)
  - BRUXISM [None]
  - CONTUSION [None]
  - INSOMNIA [None]
